FAERS Safety Report 5059481-5 (Version None)
Quarter: 2006Q3

REPORT INFORMATION
  Report Type: 
  Country: None (occurrence: None)
  Receive Date: 20060724
  Receipt Date: 20060703
  Transmission Date: 20061208
  Serious: Yes (Life-Threatening, Hospitalization, Other)
  Sender: FDA-Public Use
  Company Number: JP-BRISTOL-MYERS SQUIBB COMPANY-13432364

PATIENT
  Age: 65 Year
  Sex: Male

DRUGS (10)
  1. TAXOL [Suspect]
     Indication: LUNG ADENOCARCINOMA
     Route: 041
     Dates: start: 20060529, end: 20060529
  2. AMOBAN [Concomitant]
     Route: 048
     Dates: start: 20060527, end: 20060625
  3. SENNA [Concomitant]
     Route: 048
     Dates: start: 20060526, end: 20060625
  4. ZYRTEC [Concomitant]
     Route: 048
     Dates: start: 20060526, end: 20060625
  5. MUCODYNE [Concomitant]
     Route: 048
     Dates: start: 20060526, end: 20060625
  6. MUCOSOLVAN [Concomitant]
     Route: 048
     Dates: start: 20060526, end: 20060625
  7. BIOFERMIN [Concomitant]
     Route: 048
     Dates: start: 20060527, end: 20060625
  8. CELESTONE [Concomitant]
     Route: 048
     Dates: start: 20060527, end: 20060625
  9. ZANTAC [Concomitant]
     Route: 041
     Dates: start: 20060607, end: 20060607
  10. SOLU-MEDROL [Concomitant]
     Route: 041
     Dates: start: 20060608, end: 20060630

REACTIONS (5)
  - DIARRHOEA [None]
  - HAEMATOMA [None]
  - NEUTROPENIA [None]
  - PLATELET COUNT DECREASED [None]
  - PURPURA [None]
